FAERS Safety Report 9020445 (Version 1)
Quarter: 2013Q1

REPORT INFORMATION
  Report Type: Spontaneous
  Country: US (occurrence: US)
  Receive Date: 20130119
  Receipt Date: 20130119
  Transmission Date: 20140127
  Serious: No
  Sender: FDA-Public Use
  Company Number: US-ALLERGAN-1208487US

PATIENT
  Sex: Female

DRUGS (4)
  1. BOTOX? [Suspect]
     Indication: SPASMODIC DYSPHONIA
     Dosage: 3.75 UNITS, SINGLE
     Route: 030
     Dates: start: 20120606, end: 20120606
  2. BOTOX? [Suspect]
     Dosage: 3.75 UNITS, SINGLE
     Route: 030
     Dates: start: 20120606, end: 20120611
  3. BOTOX? [Suspect]
     Dosage: 3.75 UNK, UNK
     Route: 030
     Dates: start: 20120611, end: 20120611
  4. BOTOX? [Suspect]
     Dosage: 3.75 UNK, UNK
     Route: 030
     Dates: start: 20120611, end: 20120611

REACTIONS (2)
  - Drug ineffective [Unknown]
  - Drug ineffective [Unknown]
